FAERS Safety Report 4639766-4 (Version None)
Quarter: 2005Q1

REPORT INFORMATION
  Report Type: 
  Country: None (occurrence: None)
  Receive Date: 20050328
  Receipt Date: 20050114
  Transmission Date: 20050727
  Serious: No
  Sender: FDA-Public Use
  Company Number: USA050188470

PATIENT
  Age: 12 Year
  Sex: Female
  Weight: 48 kg

DRUGS (3)
  1. STRATTERA [Suspect]
     Indication: ATTENTION DEFICIT/HYPERACTIVITY DISORDER
     Dosage: 60 MG DAY
     Dates: start: 20040101
  2. CONCERTA [Concomitant]
  3. RISPERDAL [Concomitant]

REACTIONS (3)
  - ANGER [None]
  - INTENTIONAL SELF-INJURY [None]
  - MOOD SWINGS [None]
